FAERS Safety Report 9270468 (Version 2)
Quarter: 2013Q2

REPORT INFORMATION
  Report Type: Spontaneous
  Country: KR (occurrence: KR)
  Receive Date: 20130503
  Receipt Date: 20130507
  Transmission Date: 20140414
  Serious: Yes (Other)
  Sender: FDA-Public Use
  Company Number: KR-PFIZER INC-2013131686

PATIENT
  Sex: Male

DRUGS (1)
  1. XALATAN [Suspect]
     Dosage: 0.5 GTT, UNK
     Dates: start: 201304

REACTIONS (3)
  - Glaucoma [Unknown]
  - Dry eye [Unknown]
  - Ocular hyperaemia [Unknown]
